FAERS Safety Report 18459554 (Version 1)
Quarter: 2020Q4

REPORT INFORMATION
  Report Type: Spontaneous
  Country: US (occurrence: US)
  Receive Date: 20201103
  Receipt Date: 20201103
  Transmission Date: 20210114
  Serious: No
  Sender: FDA-Public Use
  Company Number: US-PFIZER INC-2020421209

PATIENT
  Age: 80 Year
  Sex: Male
  Weight: 149.23 kg

DRUGS (1)
  1. VYNDAMAX [Suspect]
     Active Substance: TAFAMIDIS
     Indication: AMYLOIDOSIS
     Dosage: 61 MG, 1X/DAY (61MG 1 CAPSULE BY MOUTH ONCE A DAY )
     Route: 048
     Dates: start: 202004

REACTIONS (3)
  - Viral infection [Recovering/Resolving]
  - Cough [Recovering/Resolving]
  - Productive cough [Unknown]

NARRATIVE: CASE EVENT DATE: 202010
